FAERS Safety Report 6891418-6 (Version None)
Quarter: 2010Q3

REPORT INFORMATION
  Report Type: 
  Country: None (occurrence: None)
  Receive Date: 20100731
  Receipt Date: 20070716
  Transmission Date: 20110219
  Serious: No
  Sender: FDA-Public Use
  Company Number: US-PFIZER INC-2007009585

PATIENT
  Sex: Male
  Weight: 68.04 kg

DRUGS (7)
  1. NORVASC [Suspect]
     Indication: HYPERTENSION
     Route: 048
     Dates: start: 20060830
  2. CALCIUM [Suspect]
     Route: 048
     Dates: end: 20060922
  3. MULTI-VITAMINS [Concomitant]
  4. SAW PALMETTO [Concomitant]
  5. GARLIC [Concomitant]
  6. ASCORBIC ACID [Concomitant]
  7. LIPITOR [Concomitant]
     Dates: start: 20040101

REACTIONS (1)
  - FEELING ABNORMAL [None]
